FAERS Safety Report 17578655 (Version 5)
Quarter: 2020Q2

REPORT INFORMATION
  Report Type: Report from Study
  Country: DK (occurrence: DK)
  Receive Date: 20200324
  Receipt Date: 20200518
  Transmission Date: 20200713
  Serious: Yes (Hospitalization, Other)
  Sender: FDA-Public Use
  Company Number: DK-PFIZER INC-2020068649

PATIENT
  Age: 40 Year
  Sex: Male
  Weight: 66 kg

DRUGS (5)
  1. IRON [Concomitant]
     Active Substance: IRON
     Indication: PROPHYLAXIS
     Dosage: 1 TAB, QD (ONCE DAILY)
     Route: 048
     Dates: start: 20190507
  2. CALCIUM WITH VITAMIN D [CALCIUM CARBONATE;COLECALCIFEROL] [Concomitant]
     Indication: PROPHYLAXIS
     Dosage: 2 TAB, QD (ONCE DAILY)
     Route: 048
     Dates: start: 20130108
  3. ALENDRONAT [Concomitant]
     Active Substance: ALENDRONATE SODIUM
     Indication: OSTEOPOROSIS
     Dosage: 70 MG, WEEKLY
     Route: 048
     Dates: start: 20160204, end: 20200213
  4. XELJANZ [Suspect]
     Active Substance: TOFACITINIB CITRATE
     Indication: COLITIS ULCERATIVE
     Dosage: 5 MG, 2X/DAY
     Route: 048
     Dates: start: 20141017, end: 20200211
  5. MEZAVANT [Concomitant]
     Active Substance: MESALAMINE
     Indication: COLITIS ULCERATIVE
     Dosage: 4800 MG, QD (ONCE DAILY)
     Route: 048
     Dates: start: 20120604

REACTIONS (3)
  - Metastases to liver [Not Recovered/Not Resolved]
  - Cholangiocarcinoma [Not Recovered/Not Resolved]
  - Metastases to lymph nodes [Not Recovered/Not Resolved]

NARRATIVE: CASE EVENT DATE: 202001
